FAERS Safety Report 9875266 (Version 2)
Quarter: 2016Q1

REPORT INFORMATION
  Report Type: Other
  Country: US (occurrence: US)
  Receive Date: 20140206
  Receipt Date: 20160119
  Transmission Date: 20160526
  Serious: Yes (Disabling)
  Sender: FDA-Public Use
  Company Number: US-ACORDA-ACO_36424_2013

PATIENT
  Age: 56 Year
  Sex: Female
  Weight: 89.8 kg

DRUGS (3)
  1. AVONEX [Suspect]
     Active Substance: INTERFERON BETA-1A
     Indication: PRODUCT USED FOR UNKNOWN INDICATION
     Dosage: UNK
     Dates: end: 201208
  2. AMPYRA [Suspect]
     Active Substance: DALFAMPRIDINE
     Indication: MULTIPLE SCLEROSIS
     Dosage: 10 MG, Q 12 HRS
     Route: 048
     Dates: start: 20100901, end: 201107
  3. AMPYRA [Suspect]
     Active Substance: DALFAMPRIDINE
     Dosage: 10 MG, BID
     Route: 048
     Dates: start: 2012

REACTIONS (16)
  - Psychosomatic disease [Unknown]
  - Panic attack [Recovered/Resolved]
  - Neck injury [Unknown]
  - Anxiety [None]
  - Dizziness [Recovered/Resolved]
  - Nightmare [Unknown]
  - Asthenia [Unknown]
  - Disability [Unknown]
  - Laceration [Unknown]
  - Fatigue [Unknown]
  - Insomnia [Recovered/Resolved]
  - Candida infection [Unknown]
  - Walking aid user [Unknown]
  - Fall [Recovered/Resolved]
  - Malaise [Unknown]
  - Balance disorder [Recovered/Resolved]

NARRATIVE: CASE EVENT DATE: 20101001
